FAERS Safety Report 8343215-2 (Version None)
Quarter: 2012Q2

REPORT INFORMATION
  Report Type: 
  Country: None (occurrence: None)
  Receive Date: 20120504
  Receipt Date: 20120504
  Transmission Date: 20120825
  Serious: Yes (Life-Threatening, Other)
  Sender: FDA-Public Use
  Company Number: None

PATIENT
  Age: 59 Year
  Sex: Male
  Weight: 72.5755 kg

DRUGS (2)
  1. ANDROGEL [Suspect]
     Indication: BLOOD TESTOSTERONE DECREASED
     Dosage: 40.56 TO SKIN DAILY 2 PUMPS
     Dates: start: 20120418, end: 20120501
  2. TESTOSTERONE [Suspect]
     Dosage: DAILY 2 PUMPS

REACTIONS (24)
  - DIZZINESS [None]
  - SKIN DISORDER [None]
  - DISTURBANCE IN ATTENTION [None]
  - ORAL DISCOMFORT [None]
  - BLOOD GLUCOSE DECREASED [None]
  - NERVOUSNESS [None]
  - MENTAL IMPAIRMENT [None]
  - GLOSSODYNIA [None]
  - CONFUSIONAL STATE [None]
  - SYNCOPE [None]
  - ANXIETY [None]
  - LOSS OF LIBIDO [None]
  - PRURITUS [None]
  - APATHY [None]
  - PARAESTHESIA ORAL [None]
  - THROAT IRRITATION [None]
  - NAUSEA [None]
  - HOSTILITY [None]
  - BURNING SENSATION [None]
  - PRODUCT TASTE ABNORMAL [None]
  - ASTHENIA [None]
  - FEELING ABNORMAL [None]
  - HEADACHE [None]
  - IMPATIENCE [None]
